FAERS Safety Report 11405292 (Version 1)
Quarter: 2015Q3

REPORT INFORMATION
  Report Type: Spontaneous
  Country: GB (occurrence: GB)
  Receive Date: 20150821
  Receipt Date: 20150821
  Transmission Date: 20151125
  Serious: Yes (Other)
  Sender: FDA-Public Use
  Company Number: GB-PFIZER INC-2015275473

PATIENT
  Sex: Female

DRUGS (1)
  1. LYRICA [Suspect]
     Active Substance: PREGABALIN
     Dosage: 75 MG, 2X/DAY

REACTIONS (7)
  - Dizziness [Unknown]
  - Dry mouth [Unknown]
  - Burning sensation [Unknown]
  - Somnolence [Unknown]
  - Nausea [Unknown]
  - Hypertension [Unknown]
  - Feeling hot [Unknown]
